FAERS Safety Report 6610104-0 (Version None)
Quarter: 2010Q1

REPORT INFORMATION
  Report Type: 
  Country: None (occurrence: None)
  Receive Date: 20100219
  Receipt Date: 20100205
  Transmission Date: 20100710
  Serious: Yes (Other)
  Sender: FDA-Public Use
  Company Number: 1000011450

PATIENT
  Age: 52 Year
  Sex: Female
  Weight: 86 kg

DRUGS (4)
  1. ESCITALOPRAM [Suspect]
     Indication: DEPRESSION
     Dosage: 30 MG,ORAL
     Route: 048
     Dates: start: 20090610, end: 20090617
  2. ESCITALOPRAM [Suspect]
     Indication: DEPRESSION
     Dosage: 10 MG, ORAL
     Route: 048
     Dates: start: 20090618, end: 20091212
  3. ZOPICLONE [Concomitant]
  4. XANAX (25 MILLIGRAM) [Concomitant]

REACTIONS (6)
  - ACCIDENTAL OVERDOSE [None]
  - ARTHRALGIA [None]
  - DISCOMFORT [None]
  - MUSCULOSKELETAL STIFFNESS [None]
  - POLYNEUROPATHY [None]
  - UNEVALUABLE EVENT [None]
